FAERS Safety Report 24161435 (Version 1)
Quarter: 2024Q3

REPORT INFORMATION
  Report Type: Spontaneous
  Country: JP (occurrence: JP)
  Receive Date: 20240801
  Receipt Date: 20240801
  Transmission Date: 20241017
  Serious: Yes (Hospitalization)
  Sender: CHEPLAPHARM
  Company Number: JP-CP_KK-2024JP000975

PATIENT

DRUGS (1)
  1. CAPECITABINE [Suspect]
     Active Substance: CAPECITABINE
     Indication: Colon cancer
     Dosage: 6 TABLETS X 2 TIMES/DAY SINCE APRIL?DAILY DOSE: 3600 MILLIGRAM
     Route: 048
     Dates: start: 202404

REACTIONS (5)
  - Hiccups [Unknown]
  - Muscle twitching [Unknown]
  - Dizziness [Not Recovered/Not Resolved]
  - Pruritus [Unknown]
  - Hypoaesthesia [Not Recovered/Not Resolved]

NARRATIVE: CASE EVENT DATE: 20240601
